FAERS Safety Report 6269043-X (Version None)
Quarter: 2009Q3

REPORT INFORMATION
  Report Type: 
  Country: None (occurrence: None)
  Receive Date: 20090715
  Receipt Date: 20090707
  Transmission Date: 20100115
  Serious: Yes (Hospitalization)
  Sender: FDA-Public Use
  Company Number: B0582996A

PATIENT
  Sex: Male

DRUGS (6)
  1. CLAVAMOX [Suspect]
     Indication: LIMB INJURY
     Route: 048
     Dates: start: 20090608, end: 20090620
  2. GENTAMICIN [Concomitant]
     Route: 061
     Dates: start: 20090608
  3. RINDERON [Concomitant]
     Route: 065
     Dates: start: 20090610
  4. ZADITEN [Concomitant]
     Route: 065
     Dates: start: 20090617
  5. BANAN [Concomitant]
     Route: 048
     Dates: start: 20090617
  6. KLARICID [Concomitant]
     Route: 048

REACTIONS (1)
  - DRUG ERUPTION [None]
